FAERS Safety Report 11566755 (Version 2)
Quarter: 2015Q4

REPORT INFORMATION
  Report Type: Spontaneous
  Country: US (occurrence: US)
  Receive Date: 20150916
  Receipt Date: 20151027
  Transmission Date: 20160304
  Serious: No
  Sender: FDA-Public Use
  Company Number: US-ELI_LILLY_AND_COMPANY-US200906005084

PATIENT
  Age: 86 Year
  Sex: Female

DRUGS (15)
  1. TYLENOL [Concomitant]
     Active Substance: ACETAMINOPHEN
     Indication: BACK PAIN
  2. SYNTHROID [Concomitant]
     Active Substance: LEVOTHYROXINE SODIUM
     Indication: THYROID DISORDER
  3. VITAMIN D [Concomitant]
     Active Substance: CHOLECALCIFEROL
     Dosage: UNK, UNK
  4. LIPITOR [Concomitant]
     Active Substance: ATORVASTATIN CALCIUM
  5. ATENOLOL. [Concomitant]
     Active Substance: ATENOLOL
  6. ACTOS [Concomitant]
     Active Substance: PIOGLITAZONE HYDROCHLORIDE
     Indication: DIABETES MELLITUS
     Dosage: 45 MG, UNK
  7. KLONOPIN [Concomitant]
     Active Substance: CLONAZEPAM
  8. INDAPAMIDE. [Concomitant]
     Active Substance: INDAPAMIDE
  9. ALPRAZOLAM. [Concomitant]
     Active Substance: ALPRAZOLAM
     Indication: ANXIETY
  10. FORTEO [Suspect]
     Active Substance: TERIPARATIDE
     Dosage: 20 UG, DAILY (1/D)
  11. ALDACTONE [Concomitant]
     Active Substance: SPIRONOLACTONE
  12. FORTEO [Suspect]
     Active Substance: TERIPARATIDE
     Indication: OSTEOPOROSIS
     Dosage: 20 UG, DAILY (1/D)
     Route: 058
  13. FORTEO [Suspect]
     Active Substance: TERIPARATIDE
     Dosage: 20 UG, DAILY (1/D)
     Dates: start: 20100609
  14. BABY ASPIRIN [Concomitant]
     Active Substance: ASPIRIN
     Dosage: 81 MG, AS NEEDED
  15. CO-Q10 [Concomitant]

REACTIONS (15)
  - Palpitations [Unknown]
  - Stress [Unknown]
  - Dyspepsia [Unknown]
  - Asthenia [Unknown]
  - Blood pressure systolic increased [Unknown]
  - Eye disorder [Unknown]
  - Contusion [Unknown]
  - Feeling jittery [Unknown]
  - Heart rate increased [Unknown]
  - Dizziness [Unknown]
  - Visual impairment [Unknown]
  - Vertigo [Not Recovered/Not Resolved]
  - Blood pressure diastolic decreased [Unknown]
  - Burning sensation [Unknown]
  - Balance disorder [Unknown]

NARRATIVE: CASE EVENT DATE: 20100508
